FAERS Safety Report 4754042-7 (Version None)
Quarter: 2005Q3

REPORT INFORMATION
  Report Type: 
  Country: None (occurrence: None)
  Receive Date: 20050826
  Receipt Date: 20050428
  Transmission Date: 20060218
  Serious: Yes (Other)
  Sender: FDA-Public Use
  Company Number: US-MERCK-0505USA00229

PATIENT
  Sex: Female

DRUGS (4)
  1. VIOXX [Suspect]
     Route: 048
     Dates: start: 19990601, end: 20030501
  2. VIOXX [Suspect]
     Route: 065
  3. ASPIRIN [Concomitant]
     Route: 065
     Dates: start: 20030501
  4. ACETAMINOPHEN [Concomitant]
     Route: 065
     Dates: start: 19950201

REACTIONS (2)
  - MYOCARDIAL INFARCTION [None]
  - TRANSIENT ISCHAEMIC ATTACK [None]
